FAERS Safety Report 7771567-0 (Version None)
Quarter: 2011Q3

REPORT INFORMATION
  Report Type: 
  Country: None (occurrence: None)
  Receive Date: 20110922
  Receipt Date: 20100914
  Transmission Date: 20111222
  Serious: Yes (Other)
  Sender: FDA-Public Use
  Company Number: US-ASTRAZENECA-2010SE39474

PATIENT
  Age: 52 Year
  Sex: Male

DRUGS (5)
  1. XANAX [Concomitant]
     Indication: ANXIETY
     Route: 048
     Dates: start: 20100621, end: 20100706
  2. LAMICTAL [Concomitant]
     Indication: BIPOLAR DISORDER
     Route: 048
     Dates: start: 20091109
  3. WELLBUTRIN XL [Concomitant]
     Route: 048
     Dates: start: 20100621, end: 20100706
  4. SEROQUEL XR [Suspect]
     Route: 048
     Dates: start: 20100812
  5. BUSPIRONE HCL [Concomitant]
     Indication: ANXIETY
     Route: 048
     Dates: start: 20100621, end: 20100706

REACTIONS (1)
  - CONVULSION [None]
